FAERS Safety Report 9854659 (Version 1)
Quarter: 2014Q1

REPORT INFORMATION
  Report Type: Spontaneous
  Country: US (occurrence: US)
  Receive Date: 20140130
  Receipt Date: 20140130
  Transmission Date: 20141002
  Serious: No
  Sender: FDA-Public Use
  Company Number: US-BIOGENIDEC-2014BI008158

PATIENT
  Age: 48 Year
  Sex: Female

DRUGS (7)
  1. TECFIDERA [Suspect]
     Indication: MULTIPLE SCLEROSIS
     Route: 048
     Dates: start: 201310
  2. PAXIL [Concomitant]
  3. CALCIUM [Concomitant]
  4. VITAMIN B-12 [Concomitant]
  5. FISH OIL CONC [Concomitant]
  6. VITAMIN K1 [Concomitant]
  7. MAGNESIUM [Concomitant]

REACTIONS (4)
  - Influenza like illness [Recovered/Resolved]
  - Chills [Recovered/Resolved]
  - Rhinorrhoea [Recovered/Resolved]
  - Cough [Recovered/Resolved]
